FAERS Safety Report 20226665 (Version 7)
Quarter: 2024Q4

REPORT INFORMATION
  Report Type: Report from Study
  Country: JP (occurrence: JP)
  Receive Date: 20211224
  Receipt Date: 20241216
  Transmission Date: 20250114
  Serious: Yes (Other)
  Sender: VIIV
  Company Number: JP-VIIV HEALTHCARE LIMITED-JP2018JPN228825

PATIENT

DRUGS (5)
  1. DOLUTEGRAVIR [Suspect]
     Active Substance: DOLUTEGRAVIR
     Indication: HIV infection
     Dosage: 50 MG, QD
     Route: 048
     Dates: start: 20171118
  2. DESCOVY [Suspect]
     Active Substance: EMTRICITABINE\TENOFOVIR ALAFENAMIDE FUMARATE
     Indication: HIV infection
     Dosage: 1 DF, QD
     Route: 048
     Dates: start: 20171118
  3. FAMVIR [Concomitant]
     Active Substance: FAMCICLOVIR
     Indication: Genital herpes
     Dosage: UNK
     Dates: start: 20171111, end: 20171120
  4. FAMVIR [Concomitant]
     Active Substance: FAMCICLOVIR
     Dosage: UNK
     Dates: start: 20201222, end: 20201226
  5. LYRICA [Concomitant]
     Active Substance: PREGABALIN
     Dosage: UNK
     Dates: start: 20171111, end: 201712

REACTIONS (14)
  - Pharyngitis [Recovering/Resolving]
  - Seasonal allergy [Recovering/Resolving]
  - Genital herpes [Recovering/Resolving]
  - Syphilis [Recovering/Resolving]
  - Syphilis [Recovering/Resolving]
  - Androgenetic alopecia [Not Recovered/Not Resolved]
  - Chlamydial infection [Recovering/Resolving]
  - Chlamydial infection [Recovering/Resolving]
  - Syphilis [Recovering/Resolving]
  - Syphilis [Recovering/Resolving]
  - Monkeypox [Recovered/Resolved]
  - Seasonal allergy [Recovering/Resolving]
  - Gonorrhoea [Recovering/Resolving]
  - Urethritis chlamydial [Recovering/Resolving]

NARRATIVE: CASE EVENT DATE: 20180801
